FAERS Safety Report 4324112-6 (Version None)
Quarter: 2004Q1

REPORT INFORMATION
  Report Type: 
  Country: None (occurrence: None)
  Receive Date: 20040326
  Receipt Date: 20031219
  Transmission Date: 20041129
  Serious: No
  Sender: FDA-Public Use
  Company Number: US-GLAXOSMITHKLINE-A0443780A

PATIENT
  Sex: Female

DRUGS (1)
  1. ADVAIR DISKUS 100/50 [Suspect]

REACTIONS (4)
  - DERMATITIS CONTACT [None]
  - DRY MOUTH [None]
  - EYE REDNESS [None]
  - INTRAOCULAR PRESSURE INCREASED [None]
